FAERS Safety Report 19650022 (Version 2)
Quarter: 2021Q3

REPORT INFORMATION
  Report Type: Spontaneous
  Country: GB (occurrence: GB)
  Receive Date: 20210803
  Receipt Date: 20210804
  Transmission Date: 20211014
  Serious: Yes (Other)
  Sender: FDA-Public Use
  Company Number: NVSC2021GB167205

PATIENT
  Age: 53 Year
  Sex: Female
  Weight: 61 kg

DRUGS (13)
  1. CLOPIDOGREL [Concomitant]
     Active Substance: CLOPIDOGREL BISULFATE
     Indication: ILL-DEFINED DISORDER
     Dosage: 1 DF, QD
     Route: 065
     Dates: start: 20201116
  2. CLENIL MODULITE [Concomitant]
     Active Substance: BECLOMETHASONE DIPROPIONATE
     Indication: ILL-DEFINED DISORDER
     Dosage: INHALE 2 DOSES, BID
     Route: 065
     Dates: start: 20201116
  3. DESOGESTREL [Concomitant]
     Active Substance: DESOGESTREL
     Indication: ILL-DEFINED DISORDER
     Dosage: 1 DF, QD
     Route: 065
     Dates: start: 20201116
  4. PROCTOSEDYL [Concomitant]
     Active Substance: DIBUCAINE HYDROCHLORIDE\HYDROCORTISONE
     Indication: ILL-DEFINED DISORDER
     Dosage: APPLY EACH MORNING AND NIGHT AND AFTER A BOWEL ...
     Route: 065
     Dates: start: 20201116
  5. ROSUVASTATIN. [Suspect]
     Active Substance: ROSUVASTATIN
     Dosage: UNK
     Route: 065
     Dates: start: 20210720
  6. ATORVASTATIN [Concomitant]
     Active Substance: ATORVASTATIN
     Indication: ILL-DEFINED DISORDER
     Dosage: 1 DF, QD
     Route: 065
     Dates: start: 20201116, end: 20210512
  7. NORTRIPTYLINE [Concomitant]
     Active Substance: NORTRIPTYLINE
     Indication: ILL-DEFINED DISORDER
     Dosage: 1 DF, QD 1 AT NIGHT
     Route: 065
     Dates: start: 20201116, end: 20210514
  8. ROSUVASTATIN. [Suspect]
     Active Substance: ROSUVASTATIN
     Indication: ILL-DEFINED DISORDER
     Dosage: 1 DF, QD
     Route: 065
     Dates: start: 20210629, end: 20210720
  9. CO?MAGALDROX [Concomitant]
     Indication: ILL-DEFINED DISORDER
     Dosage: 2X5ML SPOON AS NEEDED
     Route: 065
     Dates: start: 20201116
  10. FEXOFENADINE [Concomitant]
     Active Substance: FEXOFENADINE HYDROCHLORIDE
     Indication: ILL-DEFINED DISORDER
     Dosage: 1 DF, QD
     Route: 065
     Dates: start: 20201116
  11. GABAPENTIN. [Concomitant]
     Active Substance: GABAPENTIN
     Indication: ILL-DEFINED DISORDER
     Dosage: 1 DF, TID
     Route: 065
     Dates: start: 20201124
  12. HYOSCINE BUTYLBROMIDE [Concomitant]
     Active Substance: BUTYLSCOPOLAMINE BROMIDE
     Indication: ILL-DEFINED DISORDER
     Dosage: ONE TO BE TAKEN THREE OR FOUR TIMES A DAY
     Route: 065
     Dates: start: 20201116
  13. MIRTAZAPINE. [Concomitant]
     Active Substance: MIRTAZAPINE
     Indication: ILL-DEFINED DISORDER
     Dosage: 1 DF, QD ONE AT NIGHT
     Route: 065
     Dates: start: 20210514

REACTIONS (1)
  - Essential tremor [Unknown]

NARRATIVE: CASE EVENT DATE: 20210720
